FAERS Safety Report 7606835-6 (Version None)
Quarter: 2011Q3

REPORT INFORMATION
  Report Type: 
  Country: None (occurrence: None)
  Receive Date: 20110713
  Receipt Date: 20110616
  Transmission Date: 20111222
  Serious: Yes (Hospitalization, Congenital Anomaly)
  Sender: FDA-Public Use
  Company Number: US-GLAXOSMITHKLINE-A0923821A

PATIENT
  Sex: Male
  Weight: 1.3 kg

DRUGS (1)
  1. PAXIL [Suspect]
     Indication: PRODUCT USED FOR UNKNOWN INDICATION
     Dosage: 20MG THREE TIMES PER DAY
     Route: 064

REACTIONS (6)
  - HEART DISEASE CONGENITAL [None]
  - PNEUMONIA [None]
  - VENTRICULAR SEPTAL DEFECT [None]
  - MATERNAL EXPOSURE DURING PREGNANCY [None]
  - CARDIAC FAILURE CONGESTIVE [None]
  - LUNG DISORDER [None]
